FAERS Safety Report 12489355 (Version 1)
Quarter: 2016Q2

REPORT INFORMATION
  Report Type: Spontaneous
  Country: US (occurrence: US)
  Receive Date: 20160622
  Receipt Date: 20160622
  Transmission Date: 20160815
  Serious: Yes (Other)
  Sender: FDA-Public Use
  Company Number: US-LPDUSPRD-20160539

PATIENT
  Age: 24 Year
  Sex: Male

DRUGS (3)
  1. SODIUM BICARBONATE INJECTION, USP (0639-25) [Suspect]
     Active Substance: SODIUM BICARBONATE
     Dosage: DOSE UNKNOWN
     Route: 040
  2. AMIODARONE [Concomitant]
     Active Substance: AMIODARONE
     Dosage: DOSE UNKNOWN
     Route: 040
  3. ISOPROTERENOL [Concomitant]
     Active Substance: ISOPROTERENOL
     Dosage: DOSE UNKNOWN
     Route: 042

REACTIONS (1)
  - Electrocardiogram QRS complex shortened [Unknown]
